FAERS Safety Report 8453335-X (Version None)
Quarter: 2012Q2

REPORT INFORMATION
  Report Type: 
  Country: None (occurrence: None)
  Receive Date: 20120620
  Receipt Date: 20120613
  Transmission Date: 20120825
  Serious: Yes (Hospitalization, Other)
  Sender: FDA-Public Use
  Company Number: US-ABBOTT-11P-163-0855059-00

PATIENT
  Sex: Female
  Weight: 68.1 kg

DRUGS (2)
  1. HUMIRA [Suspect]
     Indication: PSORIATIC ARTHROPATHY
  2. HUMIRA [Suspect]
     Indication: PSORIASIS
     Dates: start: 20080101, end: 20110901

REACTIONS (5)
  - BREAST SWELLING [None]
  - PSORIASIS [None]
  - NAUSEA [None]
  - PATHOLOGICAL FRACTURE [None]
  - BREAST CANCER METASTATIC [None]
